FAERS Safety Report 23443786 (Version 1)
Quarter: 2024Q1

REPORT INFORMATION
  Report Type: Spontaneous
  Country: US (occurrence: None)
  Receive Date: 20240124
  Receipt Date: 20240124
  Transmission Date: 20240410
  Serious: Yes (Hospitalization)
  Sender: FDA-Public Use
  Company Number: None

PATIENT
  Age: 85 Year
  Sex: Male
  Weight: 78.5 kg

DRUGS (18)
  1. TOCILIZUMAB [Suspect]
     Active Substance: TOCILIZUMAB
     Indication: Giant cell arteritis
     Dosage: FREQUENCY : EVERY OTHER WEEK;?
     Route: 058
  2. APIXABAN [Concomitant]
  3. Vitamin C [Concomitant]
  4. Align Probiotic tablet [Concomitant]
  5. Bimatoprost 0.03% Solution [Concomitant]
  6. OS-CAL [Concomitant]
  7. CARVEDILOL [Concomitant]
     Active Substance: CARVEDILOL
  8. DOCUSATE [Concomitant]
  9. FINASTERIDE [Concomitant]
  10. Fluocinonide 0.05% [Concomitant]
  11. LEVOTHYROXINE [Concomitant]
     Active Substance: LEVOTHYROXINE\LEVOTHYROXINE SODIUM
  12. LOSARTAN [Concomitant]
  13. Multivitamin (Theragan) [Concomitant]
  14. Alkalol nasal wash [Concomitant]
  15. SIMVASTATIN [Concomitant]
  16. TAMSULOSIN [Concomitant]
  17. TORSEMIDE [Concomitant]
  18. TRAVOPROST [Concomitant]
     Active Substance: TRAVOPROST

REACTIONS (9)
  - Diverticular perforation [None]
  - Abdominal abscess [None]
  - Red blood cell sedimentation rate increased [None]
  - Pseudomonas test positive [None]
  - Candida test positive [None]
  - Enterococcus test positive [None]
  - Lactobacillus test positive [None]
  - Gastrointestinal haemorrhage [None]
  - Haemoglobin decreased [None]

NARRATIVE: CASE EVENT DATE: 20240112
